FAERS Safety Report 5719827-9 (Version None)
Quarter: 2008Q2

REPORT INFORMATION
  Report Type: 
  Country: None (occurrence: None)
  Receive Date: 20080428
  Receipt Date: 20080423
  Transmission Date: 20081010
  Serious: Yes (Hospitalization, Disabling, Other)
  Sender: FDA-Public Use
  Company Number: US-MERCK-0804USA05044

PATIENT
  Age: 70 Year
  Sex: Female

DRUGS (6)
  1. DECADRON [Suspect]
     Indication: MULTIPLE MYELOMA
     Route: 048
     Dates: start: 20080109, end: 20080208
  2. REVLIMID [Suspect]
     Indication: MULTIPLE MYELOMA
     Route: 048
     Dates: start: 20060901
  3. REVLIMID [Suspect]
     Route: 048
     Dates: start: 20070725, end: 20080208
  4. REVLIMID [Suspect]
     Route: 048
     Dates: start: 20080331
  5. BIAXIN [Suspect]
     Indication: MULTIPLE MYELOMA
     Route: 048
     Dates: start: 20080109, end: 20080208
  6. BIAXIN [Suspect]
     Route: 048
     Dates: start: 20080331

REACTIONS (2)
  - BASAL CELL CARCINOMA [None]
  - DIARRHOEA [None]
